FAERS Safety Report 19129134 (Version 1)
Quarter: 2021Q2

REPORT INFORMATION
  Report Type: Spontaneous
  Country: US (occurrence: US)
  Receive Date: 20210413
  Receipt Date: 20210413
  Transmission Date: 20210717
  Serious: No
  Sender: FDA-Public Use
  Company Number: US-SA-2021SA120030

PATIENT
  Sex: Female

DRUGS (4)
  1. AMITRIPTYLINE HCL [Concomitant]
     Active Substance: AMITRIPTYLINE
     Dosage: 14MG
  2. XANAX [Concomitant]
     Active Substance: ALPRAZOLAM
  3. AUBAGIO [Suspect]
     Active Substance: TERIFLUNOMIDE
     Indication: MULTIPLE SCLEROSIS
     Dosage: 14 MG, QD
     Route: 048
     Dates: start: 20191111
  4. GARLIC [ALLIUM SATIVUM OIL] [Concomitant]

REACTIONS (1)
  - Product dose omission issue [Unknown]
